FAERS Safety Report 7601816-0 (Version None)
Quarter: 2011Q3

REPORT INFORMATION
  Report Type: 
  Country: None (occurrence: None)
  Receive Date: 20110711
  Receipt Date: 20110706
  Transmission Date: 20111222
  Serious: Yes (Other)
  Sender: FDA-Public Use
  Company Number: NL-PFIZER INC-2011151022

PATIENT
  Age: 67 Year
  Sex: Female

DRUGS (2)
  1. LIPITOR [Suspect]
     Indication: BLOOD CHOLESTEROL INCREASED
     Dosage: 20 MG, UNK
  2. EUTHYROX [Concomitant]
     Dosage: UNK

REACTIONS (2)
  - AMNESIA [None]
  - ALANINE AMINOTRANSFERASE INCREASED [None]
